FAERS Safety Report 11706371 (Version 2)
Quarter: 2015Q4

REPORT INFORMATION
  Report Type: Report from Study
  Country: US (occurrence: US)
  Receive Date: 20151106
  Receipt Date: 20151119
  Transmission Date: 20160304
  Serious: Yes (Hospitalization, Other)
  Sender: FDA-Public Use
  Company Number: US-BAYER-2015-437106

PATIENT
  Age: 83 Year
  Sex: Male

DRUGS (3)
  1. XOFIGO [Suspect]
     Active Substance: RADIUM RA-223 DICHLORIDE
     Indication: METASTASIS
     Dosage: 1 PER 30 DAYS, INFUSION
     Dates: start: 20151016, end: 20151016
  2. XOFIGO [Suspect]
     Active Substance: RADIUM RA-223 DICHLORIDE
     Indication: PROSTATE CANCER
     Dosage: 1 PER 30 DAYS, INFUSION
     Dates: start: 20150904, end: 20150904
  3. XOFIGO [Suspect]
     Active Substance: RADIUM RA-223 DICHLORIDE
     Indication: PROSTATE CANCER
     Dosage: 1 PER 30 DAYS, INFUSION
     Dates: start: 2015, end: 20151016

REACTIONS (4)
  - Loss of consciousness [None]
  - Rectal haemorrhage [None]
  - Syncope [None]
  - Blood count abnormal [None]

NARRATIVE: CASE EVENT DATE: 20151002
